FAERS Safety Report 21454370 (Version 3)
Quarter: 2024Q1

REPORT INFORMATION
  Report Type: Report from Study
  Country: US (occurrence: US)
  Receive Date: 20221013
  Receipt Date: 20240306
  Transmission Date: 20240410
  Serious: Yes (Other)
  Sender: FDA-Public Use
  Company Number: US-BAUSCH-BL-2022-023217

PATIENT
  Age: 24 Year
  Sex: Male
  Weight: 74.66 kg

DRUGS (7)
  1. APRISO [Suspect]
     Active Substance: MESALAMINE
     Indication: Colitis ulcerative
     Dosage: 4 CAPSULES IN THE MORNING ORALLY ONCE IN A DAY
     Route: 048
  2. APRISO [Suspect]
     Active Substance: MESALAMINE
     Dosage: QID
     Route: 048
  3. ANUSOL HC SUPPOSITORY [Suspect]
     Active Substance: HYDROCORTISONE ACETATE
     Indication: Product used for unknown indication
     Route: 054
  4. MESALAMINE [Concomitant]
     Active Substance: MESALAMINE
     Indication: Product used for unknown indication
     Dosage: 2 TABLETS ORALLY ONCE A DAY
     Route: 048
  5. IRON [Concomitant]
     Active Substance: IRON
     Indication: Product used for unknown indication
     Dosage: AS NEEDED
     Route: 065
  6. HYDROCORTISONE ACETATE [Concomitant]
     Active Substance: HYDROCORTISONE ACETATE
     Indication: Product used for unknown indication
     Dosage: ONE SUPPOSITORY RECTALLY TWICE DAILY
     Route: 065
  7. METRONIDAZOLE BENZOATE [Concomitant]
     Active Substance: METRONIDAZOLE BENZOATE
     Indication: Product used for unknown indication
     Route: 048

REACTIONS (1)
  - Colitis ulcerative [Unknown]
